FAERS Safety Report 8162993-9 (Version None)
Quarter: 2012Q1

REPORT INFORMATION
  Report Type: 
  Country: None (occurrence: None)
  Receive Date: 20120224
  Receipt Date: 20120221
  Transmission Date: 20120608
  Serious: No
  Sender: FDA-Public Use
  Company Number: JP-PFIZER INC-2012036106

PATIENT
  Age: 42 Year
  Sex: Male

DRUGS (3)
  1. SODIUM PICOSULFATE [Concomitant]
     Indication: ANTITUSSIVE THERAPY
     Dosage: 0.7 ML DAILY
     Route: 048
     Dates: start: 20120208, end: 20120210
  2. SALIPARA CODEINE [Concomitant]
     Indication: ANTITUSSIVE THERAPY
     Dosage: 6ML DAILY
     Route: 048
     Dates: start: 20120208, end: 20120210
  3. ZITHROMAX [Suspect]
     Indication: LARYNGITIS
     Dosage: 500 MG, 1X/DAY
     Route: 048
     Dates: start: 20120208, end: 20120209

REACTIONS (2)
  - HYPERTHERMIA [None]
  - EYE PAIN [None]
